FAERS Safety Report 20116700 (Version 3)
Quarter: 2022Q1

REPORT INFORMATION
  Report Type: Report from Study
  Country: AR (occurrence: None)
  Receive Date: 20211126
  Receipt Date: 20220110
  Transmission Date: 20220423
  Serious: Yes (Disabling)
  Sender: FDA-Public Use
  Company Number: AR-Ultragenyx Pharmaceutical Inc.-AR-UGNX-21-00410

PATIENT
  Age: 15 Year
  Sex: Male
  Weight: 60 kg

DRUGS (2)
  1. MEPSEVII [Suspect]
     Active Substance: VESTRONIDASE ALFA-VJBK
     Indication: Mucopolysaccharidosis VII
  2. MEPSEVII [Suspect]
     Active Substance: VESTRONIDASE ALFA-VJBK
     Dates: start: 20210817

REACTIONS (3)
  - Fall [Recovered/Resolved]
  - Fractured coccyx [Recovered/Resolved]
  - Abscess limb [Recovered/Resolved]

NARRATIVE: CASE EVENT DATE: 20210914
